FAERS Safety Report 9844861 (Version 1)
Quarter: 2014Q1

REPORT INFORMATION
  Report Type: Spontaneous
  Country: US (occurrence: None)
  Receive Date: 20140123
  Receipt Date: 20140123
  Transmission Date: 20141002
  Serious: Yes (Life-Threatening, Hospitalization, Disabling, Other)
  Sender: FDA-Public Use
  Company Number: None

PATIENT
  Age: 53 Year
  Sex: Female
  Weight: 54.43 kg

DRUGS (1)
  1. HERCEPTIN [Suspect]
     Indication: BREAST CANCER
     Dosage: 17 INFUSIONS
     Dates: start: 201304, end: 201309

REACTIONS (8)
  - Pain [None]
  - Drug specific antibody present [None]
  - Pericardial effusion [None]
  - Weight increased [None]
  - Anger [None]
  - Impaired work ability [None]
  - Wheelchair user [None]
  - Frustration [None]
